FAERS Safety Report 13561477 (Version 2)
Quarter: 2024Q3

REPORT INFORMATION
  Report Type: Spontaneous
  Country: DE (occurrence: DE)
  Receive Date: 20170518
  Receipt Date: 20240918
  Transmission Date: 20241017
  Serious: Yes (Congenital Anomaly, Other)
  Sender: AUROBINDO
  Company Number: IT-AUROBINDO-AUR-APL-2017-34067

PATIENT
  Age: 1 Day
  Sex: Male
  Weight: 3.43 kg

DRUGS (4)
  1. PAROXETINE [Suspect]
     Active Substance: PAROXETINE
     Indication: Depression
     Dosage: 20 MG, ONCE A DAY
     Route: 064
     Dates: start: 20160701, end: 20161123
  2. CERTOPARIN SODIUM [Concomitant]
     Active Substance: CERTOPARIN SODIUM
     Indication: Factor V Leiden mutation
     Dosage: 3000 INTERNATIONAL UNIT, ONCE A DAY
     Route: 064
  3. ERYTHROMYCIN [Concomitant]
     Active Substance: ERYTHROMYCIN
     Indication: Chlamydial infection
     Dosage: 500 MG, 3 TIMES A DAY
     Route: 064
  4. FOLIC ACID [Concomitant]
     Active Substance: FOLIC ACID
     Indication: Prophylaxis of neural tube defect
     Dosage: UNK
     Route: 064

REACTIONS (6)
  - Congenital tricuspid valve incompetence [Recovered/Resolved]
  - Persistent foetal circulation [Recovered/Resolved]
  - Patent ductus arteriosus [Recovered/Resolved]
  - Newborn persistent pulmonary hypertension [Recovered/Resolved]
  - Tricuspid valve incompetence [Recovered/Resolved]
  - Foetal exposure during pregnancy [Recovered/Resolved]

NARRATIVE: CASE EVENT DATE: 20161123
